FAERS Safety Report 9048749 (Version 4)
Quarter: 2014Q1

REPORT INFORMATION
  Report Type: Report from Study
  Country: JP (occurrence: JP)
  Receive Date: 20130204
  Receipt Date: 20140327
  Transmission Date: 20141002
  Serious: Yes (Hospitalization)
  Sender: FDA-Public Use
  Company Number: JP-009507513-1301JPN013255

PATIENT
  Age: 47 Year
  Sex: Male

DRUGS (19)
  1. ISENTRESS TABLETS 400MG [Suspect]
     Indication: HIV INFECTION
     Dosage: 800 MG, QD DIVIDED DOSE FREQUENCY UNKNOWN
     Route: 048
     Dates: start: 20110706, end: 20111120
  2. EMEND [Suspect]
     Indication: ACUTE PROMYELOCYTIC LEUKAEMIA
     Dosage: 125 MG, QD
     Route: 048
     Dates: start: 20110523, end: 20110523
  3. EMEND [Suspect]
     Dosage: 80 MG, QD
     Route: 048
     Dates: start: 20110725, end: 20110729
  4. EMEND [Suspect]
     Dosage: 125 MG, QD
     Route: 048
     Dates: start: 20110826, end: 20110830
  5. EMEND [Suspect]
     Dosage: 80 MG, QD
     Route: 048
     Dates: start: 20111005, end: 20111009
  6. VESANOID [Suspect]
     Indication: ACUTE PROMYELOCYTIC LEUKAEMIA
     Dosage: 80 MG, QD
     Route: 048
     Dates: start: 20110523, end: 20110724
  7. VESANOID [Suspect]
     Dosage: 80 MG, QD
     Route: 048
     Dates: start: 20120314, end: 20120327
  8. VESANOID [Suspect]
     Dosage: 80 MG, QD
     Route: 048
     Dates: start: 20120620, end: 20120703
  9. VESANOID [Suspect]
     Dosage: 80 MG, QD
     Route: 048
     Dates: start: 20121003, end: 20121016
  10. VESANOID [Suspect]
     Dosage: 80 MG, QD
     Route: 048
     Dates: start: 20130116, end: 20130129
  11. NOVANTRON [Suspect]
     Indication: ACUTE PROMYELOCYTIC LEUKAEMIA
     Dosage: 12.5 MG, QD DIVIDED DOSE FREQUENCY UNKOWN
     Route: 051
     Dates: start: 20110725, end: 20110727
  12. CYLOCIDE [Suspect]
     Indication: ACUTE PROMYELOCYTIC LEUKAEMIA
     Dosage: 360 MG, QD DIVIDED DOSE FREQUENCY UNKNOWN
     Route: 051
     Dates: start: 20110725, end: 20110729
  13. CYLOCIDE [Suspect]
     Dosage: 360 MG, QD, DIVIDED DOSE FREQUENCY UNKNOWN
     Route: 051
     Dates: start: 20110826, end: 20110830
  14. CYLOCIDE [Suspect]
     Dosage: 250 MG, QD DIVIDED DOSE FREQUENCY UNKNOWN
     Route: 051
     Dates: start: 20111005, end: 20111009
  15. DAUNORUBICIN HYDROCHLORIDE [Suspect]
     Indication: ACUTE PROMYELOCYTIC LEUKAEMIA
     Dosage: 90 MG, QD, DIVIDED DOSE FREQUENCY UNKNOWN
     Route: 042
     Dates: start: 20110826, end: 20110828
  16. IDAMYCIN [Suspect]
     Indication: ACUTE PROMYELOCYTIC LEUKAEMIA
     Dosage: 21.5 MG, QD DIVIDED DOSE FREQUENCY UNKNOWN
     Route: 042
     Dates: start: 20111005, end: 20111007
  17. MYSLEE [Concomitant]
     Indication: INSOMNIA
     Dosage: 10 MG, QD
     Route: 065
     Dates: end: 20110809
  18. MYSLEE [Concomitant]
     Dosage: 5 MG, QD
     Dates: start: 20110810
  19. TRUVADA [Concomitant]
     Indication: HIV INFECTION
     Dosage: 1 DF, QD
     Route: 048
     Dates: start: 20090123

REACTIONS (1)
  - Bone marrow failure [Not Recovered/Not Resolved]
